FAERS Safety Report 8855118 (Version 2)
Quarter: 2014Q3

REPORT INFORMATION
  Report Type: Spontaneous
  Country: US (occurrence: US)
  Receive Date: 20121023
  Receipt Date: 20140707
  Transmission Date: 20150326
  Serious: Yes (Other)
  Sender: FDA-Public Use
  Company Number: US-UCBSA-069245

PATIENT
  Age: 22 Year
  Sex: Female
  Weight: 58.96 kg

DRUGS (2)
  1. CIMZIA [Suspect]
     Active Substance: CERTOLIZUMAB PEGOL
     Indication: RHEUMATOID ARTHRITIS
     Dosage: EV 2 WEEKS(QOW)
     Route: 058
     Dates: start: 201205, end: 201210
  2. DEPO-PROVERA [Concomitant]
     Active Substance: MEDROXYPROGESTERONE ACETATE
     Indication: CONTRACEPTION

REACTIONS (2)
  - Pregnancy [Unknown]
  - Pregnancy with injectable contraceptive [Recovered/Resolved]

NARRATIVE: CASE EVENT DATE: 201210
